FAERS Safety Report 12745441 (Version 1)
Quarter: 2016Q3

REPORT INFORMATION
  Report Type: Spontaneous
  Country: US (occurrence: US)
  Receive Date: 20160914
  Receipt Date: 20160914
  Transmission Date: 20161109
  Serious: No
  Sender: FDA-Public Use
  Company Number: None

PATIENT
  Age: 51 Year
  Sex: Female
  Weight: 46.35 kg

DRUGS (10)
  1. DEPAKOTE ER [Concomitant]
     Active Substance: DIVALPROEX SODIUM
  2. FLUTOSONE NASAL SPRAY [Concomitant]
  3. WELLBUTRIN [Concomitant]
     Active Substance: BUPROPION HYDROCHLORIDE
  4. AMPHETAMINE SALTS [Suspect]
     Active Substance: AMPHETAMINE ASPARTATE\AMPHETAMINE SULFATE\DEXTROAMPHETAMINE SACCHARATE\DEXTROAMPHETAMINE SULFATE
     Indication: ATTENTION DEFICIT/HYPERACTIVITY DISORDER
     Route: 048
     Dates: start: 20160818, end: 20160914
  5. ACYCLOVIR. [Concomitant]
     Active Substance: ACYCLOVIR
  6. ADDDERALL [Concomitant]
  7. CLONAZEPAM. [Concomitant]
     Active Substance: CLONAZEPAM
  8. ZYRTEC/CETREZINE [Concomitant]
  9. MULTIVITAMINS FOR WOMEN [Concomitant]
  10. ADDERRAL XR 30 [Concomitant]

REACTIONS (9)
  - Disturbance in attention [None]
  - Abnormal behaviour [None]
  - Asthenia [None]
  - Fatigue [None]
  - Product substitution issue [None]
  - Drug ineffective [None]
  - Weight increased [None]
  - Incorrect dose administered [None]
  - Feeling abnormal [None]

NARRATIVE: CASE EVENT DATE: 20160818
